FAERS Safety Report 18292797 (Version 1)
Quarter: 2020Q3

REPORT INFORMATION
  Report Type: Spontaneous
  Country: US (occurrence: US)
  Receive Date: 20200921
  Receipt Date: 20200921
  Transmission Date: 20201103
  Serious: No
  Sender: FDA-Public Use
  Company Number: US-PFIZER INC-2019069130

PATIENT
  Age: 72 Year
  Sex: Male
  Weight: 117.03 kg

DRUGS (4)
  1. IBUPROFEN. [Concomitant]
     Active Substance: IBUPROFEN
     Indication: RHEUMATOID ARTHRITIS
     Dosage: 800 MG, 3X/DAY
  2. METHOTREXATE SODIUM. [Concomitant]
     Active Substance: METHOTREXATE SODIUM
     Indication: RHEUMATOID ARTHRITIS
     Dosage: 0.50 ML, WEEKLY[(250MG/10ML) 0.5ML IN A DISPOSABLE SYRINGE AND INJECTS HIMSELF ONCE A WEEK]
  3. XELJANZ XR [Suspect]
     Active Substance: TOFACITINIB CITRATE
     Indication: RHEUMATOID ARTHRITIS
     Dosage: 11 MG, 1X/DAY, [AFTERNOON AT 1 OR 2 P.M.]
     Route: 048
     Dates: start: 201711
  4. METHOTREXATE SODIUM. [Concomitant]
     Active Substance: METHOTREXATE SODIUM
     Indication: RHEUMATOID FACTOR INCREASED

REACTIONS (6)
  - Rheumatoid factor increased [Unknown]
  - Ear disorder [Recovered/Resolved]
  - Skin lesion [Not Recovered/Not Resolved]
  - Acne [Unknown]
  - Weight increased [Not Recovered/Not Resolved]
  - Increased appetite [Unknown]

NARRATIVE: CASE EVENT DATE: 2018
